FAERS Safety Report 4321130-9 (Version None)
Quarter: 2004Q1

REPORT INFORMATION
  Report Type: 
  Country: None (occurrence: None)
  Receive Date: 20040322
  Receipt Date: 20040311
  Transmission Date: 20041129
  Serious: Yes (Hospitalization)
  Sender: FDA-Public Use
  Company Number: FR-BRISTOL-MYERS SQUIBB COMPANY-12530788

PATIENT
  Age: 76 Year
  Sex: Female
  Weight: 57 kg

DRUGS (5)
  1. ECAZIDE TABS 50 MG/25 MG [Suspect]
     Route: 048
  2. DEROXAT [Interacting]
     Route: 048
     Dates: end: 20030701
  3. KARDEGIC [Concomitant]
  4. ELISOR [Concomitant]
  5. CARDICOR [Concomitant]

REACTIONS (6)
  - BALANCE DISORDER [None]
  - DRUG INTERACTION [None]
  - HEADACHE [None]
  - HYPOKALAEMIA [None]
  - HYPONATRAEMIA [None]
  - NAUSEA [None]
